FAERS Safety Report 9972968 (Version 1)
Quarter: 2014Q1

REPORT INFORMATION
  Report Type: Spontaneous
  Country: US (occurrence: US)
  Receive Date: 20140306
  Receipt Date: 20140306
  Transmission Date: 20141002
  Serious: Yes (Other)
  Sender: FDA-Public Use
  Company Number: US-JNJFOC-20140218217

PATIENT
  Age: 46 Year
  Sex: Female

DRUGS (11)
  1. INVOKANA [Suspect]
     Indication: DIABETES MELLITUS
     Route: 048
     Dates: start: 20131204, end: 20140225
  2. PATANASE [Concomitant]
     Route: 045
  3. GLIPIZIDE [Concomitant]
     Route: 048
  4. LASIX [Concomitant]
  5. CELEBREX [Concomitant]
  6. ACETAMINOPHEN [Concomitant]
  7. LANTUS [Concomitant]
     Route: 058
  8. CLARITIN [Concomitant]
     Route: 048
  9. NOVOLOG [Concomitant]
  10. NEXIUM [Concomitant]
  11. LEVOTHYROXINE [Concomitant]

REACTIONS (1)
  - Retinal detachment [Unknown]
